FAERS Safety Report 14336301 (Version 2)
Quarter: 2018Q1

REPORT INFORMATION
  Report Type: Report from Study
  Country: RO (occurrence: RO)
  Receive Date: 20171229
  Receipt Date: 20180104
  Transmission Date: 20180509
  Serious: Yes (Death, Hospitalization)
  Sender: FDA-Public Use
  Company Number: RO-ASTRAZENECA-2017SF31654

PATIENT
  Age: 80 Year
  Sex: Female

DRUGS (1)
  1. SYMBICORT [Suspect]
     Active Substance: BUDESONIDE\FORMOTEROL FUMARATE DIHYDRATE
     Indication: CHRONIC OBSTRUCTIVE PULMONARY DISEASE
     Dosage: 320/9 MICROGRAMS, TWO TIMES A DAY
     Route: 055
     Dates: start: 20100101, end: 20171111

REACTIONS (2)
  - Lung disorder [Unknown]
  - Death [Fatal]

NARRATIVE: CASE EVENT DATE: 20171111
